FAERS Safety Report 11192451 (Version 1)
Quarter: 2015Q2

REPORT INFORMATION
  Report Type: Spontaneous
  Country: IT (occurrence: IT)
  Receive Date: 20150616
  Receipt Date: 20150616
  Transmission Date: 20150821
  Serious: Yes (Disabling)
  Sender: FDA-Public Use
  Company Number: IT-HOSPIRA-10773

PATIENT
  Age: 57 Year
  Sex: Female

DRUGS (1)
  1. PAMIDRONIC ACID [Suspect]
     Active Substance: PAMIDRONIC ACID
     Indication: METASTASES TO BONE
     Dosage: MONTHLY
     Route: 042
     Dates: start: 20000626, end: 20041014

REACTIONS (1)
  - Abscess jaw [Not Recovered/Not Resolved]

NARRATIVE: CASE EVENT DATE: 20040401
